FAERS Safety Report 19815164 (Version 1)
Quarter: 2021Q3

REPORT INFORMATION
  Report Type: Spontaneous
  Country: IN (occurrence: IN)
  Receive Date: 20210910
  Receipt Date: 20210910
  Transmission Date: 20211014
  Serious: Yes (Death, Hospitalization)
  Sender: FDA-Public Use
  Company Number: IN-PFIZER INC-2019448392

PATIENT
  Age: 51 Year
  Sex: Female
  Weight: 54.4 kg

DRUGS (7)
  1. CREMAFFIN PLUS [Concomitant]
     Indication: CONSTIPATION
     Dosage: 15 ML (IF CONSTIPATION)
  2. LOPERAMIDE [Concomitant]
     Active Substance: LOPERAMIDE
     Indication: DIARRHOEA
     Dosage: 2 MG, AS NEEDED
  3. CRIZALK [Suspect]
     Active Substance: CRIZOTINIB
     Indication: LUNG ADENOCARCINOMA
     Dosage: 250 MG, 2X/DAY (1 HR BEFORE MEAL)
     Route: 048
     Dates: start: 20191004, end: 20201031
  4. ATIVAN [Concomitant]
     Active Substance: LORAZEPAM
     Dosage: 1 MG; AT BED TIME (FOR SLEEP)
  5. MUCAINE 2 IN 1 [Concomitant]
     Dosage: 15 ML, AS NEEDED
  6. COREX T COUGH SYRUP [Concomitant]
     Indication: COUGH
     Dosage: UNK; 2 TEA SPOON AS NEEDED FOR COUGH
  7. PYRIGESIC [Concomitant]
     Indication: PAIN
     Dosage: 650 MG, AS NEEDED

REACTIONS (16)
  - Abdominal pain upper [Unknown]
  - Electrocardiogram abnormal [Unknown]
  - Aspartate aminotransferase increased [Unknown]
  - Headache [Unknown]
  - Dyspnoea exertional [Unknown]
  - Alanine aminotransferase increased [Unknown]
  - COVID-19 [Fatal]
  - Diarrhoea [Unknown]
  - Gamma-glutamyltransferase increased [Unknown]
  - Neoplasm progression [Fatal]
  - Nausea [Unknown]
  - Weight increased [Unknown]
  - Blood alkaline phosphatase increased [Unknown]
  - Pneumonia [Fatal]
  - Transaminases increased [Unknown]
  - Arthralgia [Unknown]

NARRATIVE: CASE EVENT DATE: 20191015
